FAERS Safety Report 16724738 (Version 1)
Quarter: 2019Q4

REPORT INFORMATION
  Report Type: Spontaneous
  Country: US (occurrence: US)
  Receive Date: 20190820
  Receipt Date: 20190820
  Transmission Date: 20200122
  Serious: Yes (Other)
  Sender: FDA-Public Use
  Company Number: None

PATIENT
  Age: 73 Year
  Sex: Male
  Weight: 95 kg

DRUGS (2)
  1. LINEZOLID. [Suspect]
     Active Substance: LINEZOLID
     Indication: EMPYEMA
     Route: 042
     Dates: start: 20190807, end: 20190812
  2. LINEZOLID. [Suspect]
     Active Substance: LINEZOLID
     Indication: STAPHYLOCOCCAL INFECTION
     Route: 042
     Dates: start: 20190807, end: 20190812

REACTIONS (4)
  - Tremor [None]
  - Confusional state [None]
  - Depression [None]
  - Mental status changes [None]

NARRATIVE: CASE EVENT DATE: 20190812
